FAERS Safety Report 18546299 (Version 2)
Quarter: 2021Q1

REPORT INFORMATION
  Report Type: Spontaneous
  Country: US (occurrence: US)
  Receive Date: 20201125
  Receipt Date: 20210126
  Transmission Date: 20210419
  Serious: No
  Sender: FDA-Public Use
  Company Number: US-PFIZER INC-2020465959

PATIENT
  Age: 63 Year
  Sex: Female

DRUGS (1)
  1. IBRANCE [Suspect]
     Active Substance: PALBOCICLIB
     Indication: BREAST CANCER FEMALE
     Dosage: 125 MG, CYCLIC (QD(EVERY DAY) X 21 DAYS) (125MG QD (ONCE DAILY) FOR 21 DAYS)
     Dates: start: 20200715

REACTIONS (5)
  - Muscle spasms [Recovering/Resolving]
  - Bone pain [Not Recovered/Not Resolved]
  - Paraesthesia [Unknown]
  - Pain [Unknown]
  - Hypoaesthesia [Unknown]
